FAERS Safety Report 23752880 (Version 1)
Quarter: 2024Q2

REPORT INFORMATION
  Report Type: Spontaneous
  Country: US (occurrence: None)
  Receive Date: 20240417
  Receipt Date: 20240417
  Transmission Date: 20240716
  Serious: No
  Sender: FDA-Public Use
  Company Number: None

PATIENT
  Age: 34 Year
  Sex: Female

DRUGS (1)
  1. ONABOTULINUMTOXINA [Suspect]
     Active Substance: ONABOTULINUMTOXINA
     Dates: start: 20240206, end: 20240206

REACTIONS (12)
  - Adverse reaction [None]
  - Blepharospasm [None]
  - Eyelid ptosis [None]
  - Vision blurred [None]
  - Facial paralysis [None]
  - Mastication disorder [None]
  - Dysphagia [None]
  - Grip strength decreased [None]
  - Diplegia [None]
  - Fatigue [None]
  - Dizziness [None]
  - Product complaint [None]

NARRATIVE: CASE EVENT DATE: 20240214
